FAERS Safety Report 8876018 (Version 1)
Quarter: 2012Q4

REPORT INFORMATION
  Report Type: 
  Country: GB (occurrence: GB)
  Receive Date: 20121030
  Receipt Date: 20121030
  Transmission Date: 20130627
  Serious: Yes (Other)
  Sender: FDA-Public Use
  Company Number: GB-009507513-1210GBR010799

PATIENT
  Sex: Female
  Weight: 57.1 kg

DRUGS (1)
  1. MIRTAZAPINE [Suspect]
     Indication: DEPRESSED MOOD
     Dosage: 15 mg, UNK
     Route: 048
     Dates: start: 20120625, end: 20120927

REACTIONS (4)
  - Dysphagia [Recovered/Resolved]
  - Angioedema [Recovered/Resolved]
  - Oedema mouth [Recovered/Resolved]
  - Swollen tongue [Recovered/Resolved]
